FAERS Safety Report 4733624-2 (Version None)
Quarter: 2005Q3

REPORT INFORMATION
  Report Type: 
  Country: None (occurrence: None)
  Receive Date: 20050803
  Receipt Date: 20050726
  Transmission Date: 20060218
  Serious: Yes (Death)
  Sender: FDA-Public Use
  Company Number: JP-ABBOTT-05P-087-0306884-00

PATIENT
  Sex: Male

DRUGS (5)
  1. KALETRA [Suspect]
     Indication: HIV INFECTION
     Route: 048
     Dates: start: 20040416, end: 20040812
  2. LAMIVUDINE [Concomitant]
     Indication: HIV INFECTION
     Route: 048
     Dates: start: 20040401, end: 20040812
  3. STAVUDINE [Concomitant]
     Indication: HIV INFECTION
     Route: 048
     Dates: start: 20040401, end: 20040812
  4. NELFINAVIR [Concomitant]
     Indication: HIV INFECTION
     Route: 048
     Dates: start: 20040401, end: 20040415
  5. VALPROATE SODIUM [Concomitant]
     Indication: CONVULSION PROPHYLAXIS
     Route: 048
     Dates: start: 20040402, end: 20040506

REACTIONS (1)
  - PROGRESSIVE MULTIFOCAL LEUKOENCEPHALOPATHY [None]
